FAERS Safety Report 5295318-7 (Version None)
Quarter: 2007Q2

REPORT INFORMATION
  Report Type: 
  Country: None (occurrence: None)
  Receive Date: 20070405
  Receipt Date: 20070330
  Transmission Date: 20071010
  Serious: Yes (Life-Threatening, Hospitalization)
  Sender: FDA-Public Use
  Company Number: 239198

PATIENT
  Age: 55 Year
  Sex: Female
  Weight: 77.6 kg

DRUGS (1)
  1. XOLAIR [Suspect]
     Indication: ASTHMA
     Dosage: 300 MG, 4/WEEK, SUBCUTANEOUS
     Route: 058
     Dates: start: 20060919

REACTIONS (2)
  - ASTHMA [None]
  - CHEST PAIN [None]
